FAERS Safety Report 6672507-8 (Version None)
Quarter: 2010Q2

REPORT INFORMATION
  Report Type: 
  Country: None (occurrence: None)
  Receive Date: 20100406
  Receipt Date: 20100322
  Transmission Date: 20101027
  Serious: Yes (Hospitalization, Disabling, Other)
  Sender: FDA-Public Use
  Company Number: 1000012804

PATIENT
  Age: 48 Year
  Sex: Female

DRUGS (2)
  1. CITALOPRAM HYDROBROMIDE [Suspect]
     Indication: DEPRESSION
     Dosage: 20 MG (20 MG, 1 IN 1 D)
  2. ZOLMITRIPTAN [Suspect]
     Indication: MIGRAINE
     Dosage: 5 MG (5 MG, 1 IN 1 D)

REACTIONS (5)
  - ACUTE CORONARY SYNDROME [None]
  - BLOOD PRESSURE INCREASED [None]
  - DRUG INTERACTION [None]
  - MYOCARDIAL INFARCTION [None]
  - SINUS TACHYCARDIA [None]
